FAERS Safety Report 9422794 (Version 3)
Quarter: 2013Q3

REPORT INFORMATION
  Report Type: Spontaneous
  Country: US (occurrence: None)
  Receive Date: 20130724
  Receipt Date: 20130814
  Transmission Date: 20140515
  Serious: Yes (Other)
  Sender: FDA-Public Use
  Company Number: 2013P1012405

PATIENT
  Age: 49 Year
  Sex: Male

DRUGS (2)
  1. INFUMORPH [Suspect]
     Indication: CANCER PAIN
     Route: 037
     Dates: end: 20130617
  2. INFUMORPH [Suspect]
     Indication: BONE DISORDER
     Route: 037
     Dates: end: 20130617

REACTIONS (11)
  - Implant site extravasation [None]
  - CSF pressure decreased [None]
  - Keratinising squamous cell carcinoma of nasopharynx [None]
  - Lip and/or oral cavity cancer [None]
  - Metastasis [None]
  - Device occlusion [None]
  - Underweight [None]
  - Therapeutic response decreased [None]
  - Wrong technique in drug usage process [None]
  - Inadequate analgesia [None]
  - Device kink [None]
